FAERS Safety Report 10592572 (Version 1)
Quarter: 2014Q4

REPORT INFORMATION
  Report Type: Spontaneous
  Country: US (occurrence: None)
  Receive Date: 20141117
  Receipt Date: 20141117
  Transmission Date: 20150529
  Serious: Yes (Other)
  Sender: FDA-Public Use
  Company Number: IMP_08143_2014

PATIENT
  Age: 55 Year
  Sex: Male

DRUGS (3)
  1. BUPROPION [Suspect]
     Active Substance: BUPROPION
     Indication: POST-TRAUMATIC STRESS DISORDER
  2. BUPROPION [Suspect]
     Active Substance: BUPROPION
     Indication: MAJOR DEPRESSION
  3. SERTRALINE [Suspect]
     Active Substance: SERTRALINE HYDROCHLORIDE
     Indication: POST-TRAUMATIC STRESS DISORDER
     Dosage: TITRATED

REACTIONS (5)
  - Libido increased [None]
  - Sexual relationship change [None]
  - Hypersexuality [None]
  - Marital problem [None]
  - Erection increased [None]
